FAERS Safety Report 5578252-4 (Version None)
Quarter: 2007Q4

REPORT INFORMATION
  Report Type: 
  Country: None (occurrence: None)
  Receive Date: 20071231
  Receipt Date: 20071220
  Transmission Date: 20080405
  Serious: Yes (Disabling, Other)
  Sender: FDA-Public Use
  Company Number: JP-PFIZER INC-2007081461

PATIENT
  Sex: Male
  Weight: 52 kg

DRUGS (5)
  1. SOLU-MEDROL [Suspect]
     Indication: IGA NEPHROPATHY
     Dosage: DAILY DOSE:500MG
     Dates: start: 20060829, end: 20060831
  2. PREDNISOLONE [Concomitant]
     Dosage: DAILY DOSE:20MG
     Route: 048
  3. AMLODIN [Concomitant]
     Route: 048
  4. BLOPRESS [Concomitant]
     Route: 048
     Dates: start: 20060517, end: 20060101
  5. RABEPRAZOLE SODIUM [Concomitant]
     Route: 048
     Dates: start: 20060823, end: 20060101

REACTIONS (1)
  - HEPATIC FUNCTION ABNORMAL [None]
